FAERS Safety Report 17072226 (Version 3)
Quarter: 2020Q2

REPORT INFORMATION
  Report Type: Report from Study
  Country: IT (occurrence: IT)
  Receive Date: 20191125
  Receipt Date: 20200603
  Transmission Date: 20200713
  Serious: Yes (Hospitalization, Other)
  Sender: FDA-Public Use
  Company Number: IT-PFIZER INC-2019502402

PATIENT
  Age: 14 Year
  Sex: Female

DRUGS (4)
  1. DIBASE [Concomitant]
     Active Substance: CHOLECALCIFEROL
     Indication: PROPHYLAXIS
     Dosage: UNK
     Route: 048
     Dates: start: 20150415
  2. SOMATROPIN. [Suspect]
     Active Substance: SOMATROPIN
     Dosage: UNK (0.031 OT, UNKNOWN (10MG/1.5ML))
     Route: 058
     Dates: start: 20191009
  3. SOMATROPIN. [Suspect]
     Active Substance: SOMATROPIN
     Indication: GROWTH HORMONE DEFICIENCY
     Dosage: UNK (0.031 OT, UNKNOWN (10MG/1.5ML))
     Route: 058
     Dates: start: 20150706
  4. EUTIROX [Concomitant]
     Active Substance: LEVOTHYROXINE SODIUM
     Indication: HYPOTHYROIDISM
     Dosage: UNK
     Route: 048
     Dates: start: 20170512

REACTIONS (5)
  - Pharyngotonsillitis [Recovered/Resolved]
  - Pyrexia [Unknown]
  - Muscular weakness [Recovered/Resolved]
  - Dysstasia [Recovered/Resolved]
  - Adrenal insufficiency [Unknown]

NARRATIVE: CASE EVENT DATE: 20160420
